FAERS Safety Report 18022344 (Version 2)
Quarter: 2024Q1

REPORT INFORMATION
  Report Type: Other
  Country: GB (occurrence: None)
  Receive Date: 20200715
  Receipt Date: 20240209
  Transmission Date: 20240410
  Serious: Yes (Hospitalization)
  Sender: FDA-Public Use
  Company Number: GB-ROCHE-2564373

PATIENT
  Sex: Female

DRUGS (5)
  1. TOCILIZUMAB [Suspect]
     Active Substance: TOCILIZUMAB
     Indication: Juvenile idiopathic arthritis
     Route: 058
     Dates: start: 2019
  2. METHOTREXATE [Concomitant]
     Active Substance: METHOTREXATE
  3. FOLIC ACID [Concomitant]
     Active Substance: FOLIC ACID
  4. LANSOPRAZOLE [Concomitant]
     Active Substance: LANSOPRAZOLE
  5. NAPROXEN [Concomitant]
     Active Substance: NAPROXEN

REACTIONS (2)
  - Joint swelling [Unknown]
  - Lower respiratory tract infection [Unknown]
